FAERS Safety Report 13879120 (Version 2)
Quarter: 2017Q4

REPORT INFORMATION
  Report Type: Report from Study
  Country: US (occurrence: US)
  Receive Date: 20170817
  Receipt Date: 20171011
  Transmission Date: 20180320
  Serious: Yes (Hospitalization, Disabling, Other)
  Sender: FDA-Public Use
  Company Number: US-ARIAD PHARMACEUTICALS, INC-2015US005355

PATIENT
  Age: 42 Year
  Sex: Female

DRUGS (9)
  1. BENADRYL [Concomitant]
     Active Substance: DIPHENHYDRAMINE HYDROCHLORIDE
     Indication: PRODUCT USED FOR UNKNOWN INDICATION
  2. ICLUSIG [Suspect]
     Active Substance: PONATINIB
     Indication: CHRONIC MYELOID LEUKAEMIA
     Dosage: 30 MG, QD
     Route: 048
     Dates: start: 20150331
  3. FENTANYL. [Concomitant]
     Active Substance: FENTANYL
     Indication: PRODUCT USED FOR UNKNOWN INDICATION
  4. MIDRIN [Concomitant]
     Active Substance: ACETAMINOPHEN\DICHLORALPHENAZONE\ISOMETHEPTENE
     Indication: PRODUCT USED FOR UNKNOWN INDICATION
  5. ICLUSIG [Suspect]
     Active Substance: PONATINIB
     Dosage: 45 MG, QD
     Route: 048
  6. ICLUSIG [Suspect]
     Active Substance: PONATINIB
     Dosage: 45 MG, QD
     Route: 048
  7. MARINOL [Concomitant]
     Active Substance: DRONABINOL
     Indication: PRODUCT USED FOR UNKNOWN INDICATION
  8. ICLUSIG [Suspect]
     Active Substance: PONATINIB
     Dosage: 45 MG, QD
     Route: 048
  9. DILAUDID [Concomitant]
     Active Substance: HYDROMORPHONE HYDROCHLORIDE
     Indication: PRODUCT USED FOR UNKNOWN INDICATION

REACTIONS (21)
  - Hydronephrosis [Unknown]
  - Ureteral stent insertion [Unknown]
  - Pain [Unknown]
  - Hyperhidrosis [Unknown]
  - Back pain [Unknown]
  - Fatigue [Unknown]
  - Pyrexia [Unknown]
  - Rash [Unknown]
  - Basophilia [Unknown]
  - Nausea [Unknown]
  - Hepatomegaly [Unknown]
  - Vena cava filter insertion [Unknown]
  - Agitation [Unknown]
  - Abdominal pain [Unknown]
  - Drug intolerance [Unknown]
  - Splenomegaly [Unknown]
  - Anaemia [Unknown]
  - Chronic myeloid leukaemia [Unknown]
  - Retroperitoneal fibrosis [Unknown]
  - Myalgia [Unknown]
  - Device dislocation [Unknown]

NARRATIVE: CASE EVENT DATE: 20170118
